FAERS Safety Report 13267948 (Version 2)
Quarter: 2017Q2

REPORT INFORMATION
  Report Type: Report from Study
  Country: CN (occurrence: CN)
  Receive Date: 20170224
  Receipt Date: 20170426
  Transmission Date: 20170830
  Serious: Yes (Other)
  Sender: FDA-Public Use
  Company Number: PHHY2017CN007901

PATIENT
  Age: 27 Year
  Sex: Female
  Weight: 60 kg

DRUGS (75)
  1. FUROSEMIDE. [Concomitant]
     Active Substance: FUROSEMIDE
     Dosage: 20 MG, QD
     Route: 042
     Dates: start: 20161118, end: 20161118
  2. GLYCERIN. [Concomitant]
     Active Substance: GLYCERIN
     Dosage: 1 OT, QD, VIAL
     Route: 065
     Dates: start: 20161207, end: 20161207
  3. ISOSORBIDE MONONITRATE. [Concomitant]
     Active Substance: ISOSORBIDE MONONITRATE
     Indication: BLOOD PRESSURE INCREASED
     Dosage: 50 MG, QD
     Route: 065
     Dates: start: 20161117, end: 20161117
  4. INSULIN [Concomitant]
     Active Substance: INSULIN NOS
     Indication: BLOOD GLUCOSE INCREASED
     Dosage: 6 U, QID
     Route: 042
     Dates: start: 20161117, end: 20161117
  5. INSULIN [Concomitant]
     Active Substance: INSULIN NOS
     Dosage: 6 U, QD
     Route: 042
     Dates: start: 20161118, end: 20161119
  6. SODIUM BICARBONATE. [Concomitant]
     Active Substance: SODIUM BICARBONATE
     Dosage: 50 ML, QID
     Route: 042
     Dates: start: 20161118, end: 20161118
  7. SODIUM BICARBONATE. [Concomitant]
     Active Substance: SODIUM BICARBONATE
     Dosage: 250 ML, QD
     Route: 042
     Dates: start: 20161117, end: 20161117
  8. SODIUM BICARBONATE. [Concomitant]
     Active Substance: SODIUM BICARBONATE
     Dosage: 1250 MG, QD
     Route: 042
     Dates: start: 20161118, end: 20161118
  9. SODIUM BICARBONATE. [Concomitant]
     Active Substance: SODIUM BICARBONATE
     Dosage: 1000 ML, QD
     Route: 042
     Dates: start: 20161202, end: 20161202
  10. METOPROLOL TARTRATE. [Concomitant]
     Active Substance: METOPROLOL TARTRATE
     Indication: BLOOD PRESSURE INCREASED
     Dosage: 25 MG, QD
     Route: 048
     Dates: start: 20161118, end: 20161118
  11. ALPROSTADIL. [Concomitant]
     Active Substance: ALPROSTADIL
     Indication: THROMBOSIS PROPHYLAXIS
     Dosage: 10 UG, QD
     Route: 042
     Dates: start: 20161123, end: 20161123
  12. BISOPROLOL FUMARATE. [Concomitant]
     Active Substance: BISOPROLOL FUMARATE
     Indication: BLOOD PRESSURE INCREASED
     Dosage: 5 MG, BID
     Route: 048
     Dates: start: 20161118, end: 20161208
  13. CEFOXITIN SODIUM [Concomitant]
     Active Substance: CEFOXITIN SODIUM
     Dosage: 2 G, QD
     Route: 042
     Dates: start: 20161117, end: 20161117
  14. GLYCERIN. [Concomitant]
     Active Substance: GLYCERIN
     Indication: CONSTIPATION
     Dosage: 110 ML, QD
     Route: 065
     Dates: start: 20161116, end: 20161116
  15. HEPARIN SODIUM. [Concomitant]
     Active Substance: HEPARIN SODIUM
     Dosage: 25000 U, QD
     Route: 042
     Dates: start: 20161130, end: 20161130
  16. LEVOCARNITINE. [Concomitant]
     Active Substance: LEVOCARNITINE
     Indication: SEIZURE
     Dosage: 1 G, QD
     Route: 042
     Dates: start: 20161121, end: 20161121
  17. SODIUM BICARBONATE. [Concomitant]
     Active Substance: SODIUM BICARBONATE
     Dosage: 250 ML, QD
     Route: 042
     Dates: start: 20161119, end: 20161119
  18. ATROPINE SULFATE. [Concomitant]
     Active Substance: ATROPINE SULFATE
     Indication: ANAESTHESIA
     Dosage: 1 MG, QD
     Route: 042
     Dates: start: 20161117, end: 20161117
  19. CEFOXITIN SODIUM [Concomitant]
     Active Substance: CEFOXITIN SODIUM
     Dosage: 2 G, BID
     Route: 042
     Dates: start: 20161117, end: 20161117
  20. CEFOPERAZONE + SULBACTAM [Concomitant]
     Indication: INFECTION PROPHYLAXIS
     Dosage: 3 G, BID
     Route: 042
     Dates: start: 20161208, end: 20161208
  21. FELODIPINE. [Concomitant]
     Active Substance: FELODIPINE
     Indication: BLOOD PRESSURE INCREASED
     Dosage: 5 MG, QD
     Route: 048
     Dates: start: 20161118, end: 20161208
  22. FERROUS SUCCINATE [Concomitant]
     Active Substance: FERROUS SUCCINATE
     Indication: PROPHYLAXIS
     Dosage: 0.1 G, TID
     Route: 048
     Dates: start: 20161120, end: 20161208
  23. FENTANYL. [Concomitant]
     Active Substance: FENTANYL
     Indication: ANAESTHESIA
     Dosage: 120 UG, QD
     Route: 042
     Dates: start: 20161117, end: 20161117
  24. HEPARIN SODIUM. [Concomitant]
     Active Substance: HEPARIN SODIUM
     Dosage: 25000 U, QD
     Route: 042
     Dates: start: 20161202, end: 20161202
  25. SODIUM BICARBONATE. [Concomitant]
     Active Substance: SODIUM BICARBONATE
     Indication: URINE ALKALINISATION THERAPY
     Dosage: 125 ML, QD
     Route: 042
     Dates: start: 20161117, end: 20161117
  26. TRAMADOL HYDROCHLORIDE. [Concomitant]
     Active Substance: TRAMADOL HYDROCHLORIDE
     Dosage: 0.1 G, QD
     Route: 030
     Dates: start: 20161118, end: 20161118
  27. PANTOPRAZOLE SODIUM. [Concomitant]
     Active Substance: PANTOPRAZOLE SODIUM
     Indication: PROPHYLAXIS
     Dosage: 40 MG, BID
     Route: 042
     Dates: start: 20161117, end: 20161117
  28. MYFORTIC [Suspect]
     Active Substance: MYCOPHENOLATE SODIUM
     Indication: RENAL TRANSPLANT
     Dosage: 1080 OT, QD
     Route: 048
  29. CISATRACURII BESILAS [Concomitant]
     Indication: ANAESTHESIA
     Dosage: 15 MG, QD
     Route: 042
     Dates: start: 20161117, end: 20161117
  30. ENOXAPARIN SODIUM. [Concomitant]
     Active Substance: ENOXAPARIN SODIUM
     Dosage: 0.3 ML, BID
     Route: 042
     Dates: start: 20161118, end: 20161208
  31. HEPARIN SODIUM. [Concomitant]
     Active Substance: HEPARIN SODIUM
     Indication: PRODUCT USED FOR UNKNOWN INDICATION
     Dosage: 25000 U, QD
     Route: 042
     Dates: start: 20161117, end: 20161117
  32. GENTAMICIN SULFATE. [Concomitant]
     Active Substance: GENTAMICIN SULFATE
     Indication: PROPHYLAXIS
     Dosage: 16 OT, QD
     Route: 042
     Dates: start: 20161117, end: 20161117
  33. ROCURONIUM BROMIDE. [Concomitant]
     Active Substance: ROCURONIUM BROMIDE
     Indication: ANAESTHESIA
     Dosage: 50 MG, QD
     Route: 042
     Dates: start: 20161117, end: 20161117
  34. SMECTITE [Concomitant]
     Active Substance: MONTMORILLONITE
     Indication: DIARRHOEA
     Dosage: 3 UNK, QD
     Route: 048
     Dates: start: 20161121, end: 20161121
  35. SMECTITE [Concomitant]
     Active Substance: MONTMORILLONITE
     Dosage: 3 G, QD
     Route: 048
     Dates: start: 20161122, end: 20161122
  36. TOLTERODINE TARTRATE. [Concomitant]
     Active Substance: TOLTERODINE TARTRATE
     Indication: HYPERKINESIA
     Dosage: 4 MG, QD
     Route: 048
     Dates: start: 20161117, end: 20161117
  37. SUCCINYLATED GELATIN [Concomitant]
     Active Substance: SUCCINYLATED GELATIN
     Indication: PROPHYLAXIS
     Dosage: 500 ML, QD
     Route: 042
     Dates: start: 20161117, end: 20161117
  38. MYFORTIC [Suspect]
     Active Substance: MYCOPHENOLATE SODIUM
     Indication: IMMUNOSUPPRESSANT DRUG THERAPY
  39. CEFOXITIN SODIUM [Concomitant]
     Active Substance: CEFOXITIN SODIUM
     Indication: INFECTION PROPHYLAXIS
     Dosage: 1 G, QD
     Route: 042
     Dates: start: 20161116, end: 20161116
  40. CEFOXITIN SODIUM [Concomitant]
     Active Substance: CEFOXITIN SODIUM
     Dosage: 2 G, BID
     Route: 042
     Dates: start: 20161117, end: 20161218
  41. ENOXAPARIN SODIUM. [Concomitant]
     Active Substance: ENOXAPARIN SODIUM
     Indication: THROMBOSIS PROPHYLAXIS
     Dosage: 0.3 ML, BID
     Route: 042
     Dates: start: 20161117, end: 20161208
  42. HEPARIN SODIUM. [Concomitant]
     Active Substance: HEPARIN SODIUM
     Dosage: 25000 U, QD
     Route: 042
     Dates: start: 20161118, end: 20161118
  43. SODIUM BICARBONATE. [Concomitant]
     Active Substance: SODIUM BICARBONATE
     Dosage: 125 ML, QD
     Route: 042
     Dates: start: 20161129, end: 20161129
  44. REMIFENTANIL HCL [Concomitant]
     Active Substance: REMIFENTANIL HYDROCHLORIDE
     Indication: ANAESTHESIA
     Dosage: 2 MG, QD
     Route: 042
     Dates: start: 20161117, end: 20161117
  45. SODIUM LACTATE. [Concomitant]
     Active Substance: SODIUM LACTATE
     Indication: FLUID REPLACEMENT
     Dosage: 500 ML, QD (6 TIMES)
     Route: 042
     Dates: start: 20161117, end: 20161117
  46. TRAMADOL HYDROCHLORIDE. [Concomitant]
     Active Substance: TRAMADOL HYDROCHLORIDE
     Indication: PAIN
     Dosage: 0.1 G, QD
     Route: 042
     Dates: start: 20161117, end: 20161117
  47. POTASSIUM CHLORIDE. [Concomitant]
     Active Substance: POTASSIUM CHLORIDE
     Dosage: 50 ML, QD
     Route: 042
     Dates: start: 20161130, end: 20161130
  48. POTASSIUM CHLORIDE. [Concomitant]
     Active Substance: POTASSIUM CHLORIDE
     Dosage: 40 ML, QD
     Route: 042
     Dates: start: 20161202, end: 20161202
  49. PANTOPRAZOLE SODIUM. [Concomitant]
     Active Substance: PANTOPRAZOLE SODIUM
     Dosage: 40 MG, BID
     Route: 042
     Dates: start: 20161117, end: 20161208
  50. ALPROSTADIL. [Concomitant]
     Active Substance: ALPROSTADIL
     Dosage: 10 U, QD
     Route: 042
     Dates: start: 20161123, end: 20161208
  51. CEFOXITIN SODIUM [Concomitant]
     Active Substance: CEFOXITIN SODIUM
     Dosage: 2 G, QD
     Route: 042
     Dates: start: 20161116, end: 20161116
  52. CEFOXITIN SODIUM [Concomitant]
     Active Substance: CEFOXITIN SODIUM
     Dosage: 2 G, QD
     Route: 065
     Dates: start: 20161207, end: 20161207
  53. FUROSEMIDE. [Concomitant]
     Active Substance: FUROSEMIDE
     Indication: POLYURIA
     Dosage: 20 MG, BID
     Route: 042
     Dates: start: 20161117, end: 20161117
  54. FUROSEMIDE. [Concomitant]
     Active Substance: FUROSEMIDE
     Dosage: 20 MG, QD
     Route: 042
     Dates: start: 20161119, end: 20161119
  55. SMECTITE [Concomitant]
     Active Substance: MONTMORILLONITE
     Dosage: 6 G, QD
     Route: 048
     Dates: start: 20161121, end: 20161121
  56. TOLTERODINE TARTRATE. [Concomitant]
     Active Substance: TOLTERODINE TARTRATE
     Indication: SEIZURE
     Dosage: 4 MG, QD
     Route: 048
     Dates: start: 20161123, end: 20161208
  57. TOLTERODINE TARTRATE. [Concomitant]
     Active Substance: TOLTERODINE TARTRATE
     Indication: PAIN
     Dosage: 4 MG, BID
     Route: 048
     Dates: start: 20161118, end: 20161118
  58. TOLTERODINE TARTRATE. [Concomitant]
     Active Substance: TOLTERODINE TARTRATE
     Dosage: 4 MG, QD
     Route: 048
     Dates: start: 20161123, end: 20161123
  59. MANNITOL. [Concomitant]
     Active Substance: MANNITOL
     Indication: POLYURIA
     Dosage: 250 ML, QD
     Route: 042
     Dates: start: 20161117, end: 20161117
  60. ENOXAPARIN SODIUM. [Concomitant]
     Active Substance: ENOXAPARIN SODIUM
     Dosage: 0.6 ML, QD
     Route: 058
     Dates: start: 20161130, end: 20161130
  61. ENOXAPARIN SODIUM. [Concomitant]
     Active Substance: ENOXAPARIN SODIUM
     Dosage: 0.4 ML, QD
     Route: 058
     Dates: start: 20161117, end: 20161117
  62. FUROSEMIDE. [Concomitant]
     Active Substance: FUROSEMIDE
     Dosage: 80 MG, QD
     Route: 042
     Dates: start: 20161117, end: 20161117
  63. FUROSEMIDE. [Concomitant]
     Active Substance: FUROSEMIDE
     Dosage: 20 MG, QD
     Route: 042
     Dates: start: 20161123, end: 20161123
  64. INDOMETACIN [Concomitant]
     Active Substance: INDOMETHACIN
     Indication: PAIN
     Dosage: 0.5 OT, QD
     Route: 048
     Dates: start: 20161118, end: 20161118
  65. LEVOCARNITINE. [Concomitant]
     Active Substance: LEVOCARNITINE
     Dosage: 1 G, QD
     Route: 042
     Dates: start: 20161123, end: 20161123
  66. LEVOCARNITINE. [Concomitant]
     Active Substance: LEVOCARNITINE
     Dosage: 1 G, QD
     Route: 042
     Dates: start: 20161125, end: 20161125
  67. NIFEDIPINE. [Concomitant]
     Active Substance: NIFEDIPINE
     Dosage: 5 MG, QD
     Route: 048
     Dates: start: 20161123, end: 20161123
  68. FOLIC ACID. [Concomitant]
     Active Substance: FOLIC ACID
     Indication: BLOOD FOLATE DECREASED
     Dosage: 5 MG, QD
     Route: 048
     Dates: start: 20161120, end: 20161208
  69. HEPARIN SODIUM. [Concomitant]
     Active Substance: HEPARIN SODIUM
     Dosage: 25000 U, QD
     Route: 042
     Dates: start: 20161207, end: 20161207
  70. SMECTITE [Concomitant]
     Active Substance: MONTMORILLONITE
     Dosage: 9 G, QD
     Route: 048
     Dates: start: 20161206, end: 20161206
  71. SODIUM BICARBONATE. [Concomitant]
     Active Substance: SODIUM BICARBONATE
     Dosage: 250 ML, QD
     Route: 042
     Dates: start: 20161205, end: 20161205
  72. TRAMADOL HYDROCHLORIDE. [Concomitant]
     Active Substance: TRAMADOL HYDROCHLORIDE
     Dosage: 0.1 G, QD
     Route: 030
     Dates: start: 20161119, end: 20161119
  73. POTASSIUM CHLORIDE. [Concomitant]
     Active Substance: POTASSIUM CHLORIDE
     Indication: MINERAL SUPPLEMENTATION
     Dosage: 50 ML, QD
     Route: 042
     Dates: start: 20161118, end: 20161118
  74. MIDAZOLAM [Concomitant]
     Active Substance: MIDAZOLAM HYDROCHLORIDE
     Indication: ANAESTHESIA
     Dosage: 2 MG, QD
     Route: 042
     Dates: start: 20161117, end: 20161117
  75. NIFEDIPINE. [Concomitant]
     Active Substance: NIFEDIPINE
     Indication: BLOOD PRESSURE INCREASED
     Dosage: 10 MG, QD
     Route: 048
     Dates: start: 20161118, end: 20161118

REACTIONS (2)
  - Complications of transplanted kidney [Recovered/Resolved]
  - Urine output decreased [Recovered/Resolved]

NARRATIVE: CASE EVENT DATE: 20161118
